FAERS Safety Report 9544275 (Version 2)
Quarter: 2013Q3

REPORT INFORMATION
  Report Type: Spontaneous
  Country: BR (occurrence: BR)
  Receive Date: 20130923
  Receipt Date: 20130923
  Transmission Date: 20140515
  Serious: Yes (Other)
  Sender: FDA-Public Use
  Company Number: BR-009507513-1210BRA003262

PATIENT
  Age: 28 Year
  Sex: Female
  Weight: 72 kg

DRUGS (2)
  1. MERCILON CONTI [Suspect]
     Indication: CONTRACEPTION
     Dosage: 150+20/10 MICROGRAM, QD
     Route: 048
     Dates: start: 201203
  2. FLUOXETINE [Concomitant]
     Indication: ANXIETY
     Dosage: UNK
     Route: 048
     Dates: start: 2008

REACTIONS (8)
  - Breast prosthesis implantation [Recovered/Resolved]
  - Dysmenorrhoea [Unknown]
  - Metrorrhagia [Not Recovered/Not Resolved]
  - Dyspepsia [Recovered/Resolved]
  - Nausea [Recovering/Resolving]
  - Pain [Unknown]
  - Drug administration error [Unknown]
  - Urinary tract infection [Not Recovered/Not Resolved]
